FAERS Safety Report 23520723 (Version 1)
Quarter: 2024Q1

REPORT INFORMATION
  Report Type: Spontaneous
  Country: US (occurrence: US)
  Receive Date: 20240214
  Receipt Date: 20240214
  Transmission Date: 20240410
  Serious: Yes (Disabling, Other)
  Sender: FDA-Public Use
  Company Number: US-OPELLA-2024OHG004194

PATIENT
  Age: 74 Year
  Sex: Female
  Weight: 78.47 kg

DRUGS (1)
  1. TALC [Suspect]
     Active Substance: TALC
     Route: 065

REACTIONS (10)
  - Mesothelioma malignant [Unknown]
  - Exposure to chemical pollution [Unknown]
  - Physical disability [Unknown]
  - Pain [Unknown]
  - Emotional distress [Unknown]
  - Anxiety [Unknown]
  - Emotional distress [Unknown]
  - Grief reaction [Unknown]
  - Deformity [Unknown]
  - Anxiety [Unknown]
